FAERS Safety Report 8790485 (Version 2)
Quarter: 2013Q1

REPORT INFORMATION
  Report Type: Spontaneous
  Country: None (occurrence: None)
  Receive Date: 20120905
  Receipt Date: 20121015
  Transmission Date: 20140127
  Serious: Yes (Life-Threatening, Hospitalization, Other)
  Sender: FDA-Public Use
  Company Number: 2012P1055254

PATIENT
  Age: 52 Year
  Sex: Male
  Weight: 78.43 kg

DRUGS (3)
  1. ADENOSINE [Suspect]
     Dates: start: 20120801, end: 20120801
  2. BIVALIRUDIN [Suspect]
     Indication: PERCUTANEOUS CORONARY INTERVENTION
     Route: 042
     Dates: start: 20120801, end: 20120801
  3. CONTRAST MEDIA [Suspect]
     Dates: start: 20120801, end: 20120801

REACTIONS (4)
  - Respiratory depression [None]
  - Chronic obstructive pulmonary disease [None]
  - Contrast media allergy [None]
  - Hypersensitivity [None]
